FAERS Safety Report 24074539 (Version 1)
Quarter: 2024Q3

REPORT INFORMATION
  Report Type: Spontaneous
  Country: ES (occurrence: ES)
  Receive Date: 20240710
  Receipt Date: 20240710
  Transmission Date: 20241017
  Serious: No
  Sender: PIERRE FABRE MEDICAMENT
  Company Number: ES-PFM-2024-01215

PATIENT
  Age: 2 Month
  Sex: Female

DRUGS (1)
  1. PROPRANOLOL [Suspect]
     Active Substance: PROPRANOLOL HYDROCHLORIDE
     Indication: Infantile haemangioma
     Dosage: 3 MG/KG/DAY
     Route: 065

REACTIONS (3)
  - Disease recurrence [Unknown]
  - Off label use [Unknown]
  - Product use issue [Unknown]
